FAERS Safety Report 8246659-2 (Version None)
Quarter: 2012Q1

REPORT INFORMATION
  Report Type: 
  Country: None (occurrence: None)
  Receive Date: 20120330
  Receipt Date: 20120327
  Transmission Date: 20120608
  Serious: Yes (Hospitalization)
  Sender: FDA-Public Use
  Company Number: JP-BAYER-2012-030838

PATIENT
  Age: 64 Year
  Sex: Female

DRUGS (2)
  1. RHEUMATREX [Suspect]
     Indication: MUSCULOSKELETAL PAIN
     Dosage: UNK
     Route: 048
     Dates: end: 20120312
  2. NEXAVAR [Suspect]
     Indication: RENAL CELL CARCINOMA
     Dosage: 400 MG, BID
     Route: 048
     Dates: start: 20111018, end: 20120312

REACTIONS (2)
  - DIARRHOEA [None]
  - MYELODYSPLASTIC SYNDROME [None]
